FAERS Safety Report 4842029-5 (Version None)
Quarter: 2005Q4

REPORT INFORMATION
  Report Type: 
  Country: None (occurrence: None)
  Receive Date: 20051130
  Receipt Date: 20051123
  Transmission Date: 20060501
  Serious: Yes (Hospitalization)
  Sender: FDA-Public Use
  Company Number: PHRM2005FR03019

PATIENT
  Age: 82 Year
  Sex: Female
  Weight: 44 kg

DRUGS (6)
  1. TAREG [Suspect]
     Indication: HYPERTENSION
     Dosage: 40 MG, QD
     Route: 048
  2. MODOPAR [Suspect]
     Dosage: 375 MG/DAY
     Route: 048
  3. OFLOCET [Suspect]
     Dosage: 200 MG, BID
     Route: 048
     Dates: end: 20050930
  4. PREVISCAN [Suspect]
     Dosage: 10 MG, QD
     Route: 048
     Dates: end: 20050921
  5. CORDARONE [Suspect]
     Dosage: 200 MG, QW5
     Route: 048
  6. DEROXAT [Suspect]
     Dosage: 20 MG, QD
     Route: 048

REACTIONS (9)
  - ANAEMIA [None]
  - ASTHENIA [None]
  - BLOOD IRON DECREASED [None]
  - DIZZINESS [None]
  - HAEMOGLOBIN DECREASED [None]
  - ORTHOSTATIC HYPOTENSION [None]
  - PALLOR [None]
  - RETICULOCYTE COUNT DECREASED [None]
  - SERUM FERRITIN INCREASED [None]
